FAERS Safety Report 10270264 (Version 2)
Quarter: 2014Q3

REPORT INFORMATION
  Report Type: Spontaneous
  Country: US (occurrence: None)
  Receive Date: 20140626
  Receipt Date: 20140708
  Transmission Date: 20150326
  Serious: Yes (Hospitalization)
  Sender: FDA-Public Use
  Company Number: SYM-2014-22459

PATIENT
  Age: 58 Year
  Sex: Female

DRUGS (4)
  1. XYREM [Suspect]
     Active Substance: SODIUM OXYBATE
     Indication: SLEEP DISORDER
     Route: 048
     Dates: start: 200410, end: 2004
  2. XYREM [Suspect]
     Active Substance: SODIUM OXYBATE
     Indication: CATAPLEXY
     Route: 048
     Dates: start: 200410, end: 2004
  3. TRAMADOL (TRAMADOL) (TRAMADOL) [Suspect]
     Active Substance: TRAMADOL
     Indication: ARTHRITIS
  4. XYREM [Suspect]
     Active Substance: SODIUM OXYBATE
     Indication: NARCOLEPSY
     Route: 048
     Dates: start: 200410, end: 2004

REACTIONS (9)
  - Psychomotor hyperactivity [None]
  - Asthma [None]
  - Pulmonary embolism [None]
  - Feeling abnormal [None]
  - Hallucination [None]
  - Arthritis [None]
  - Musculoskeletal chest pain [None]
  - Migraine [None]
  - Musculoskeletal pain [None]

NARRATIVE: CASE EVENT DATE: 20140430
